FAERS Safety Report 12537849 (Version 1)
Quarter: 2016Q3

REPORT INFORMATION
  Report Type: Spontaneous
  Country: US (occurrence: US)
  Receive Date: 20160707
  Receipt Date: 20160707
  Transmission Date: 20161109
  Serious: Yes (Hospitalization)
  Sender: FDA-Public Use
  Company Number: US-DSJP-DSU-2015-120643

PATIENT
  Age: 76 Year
  Sex: Female
  Weight: 101.59 kg

DRUGS (6)
  1. BENICAR HCT [Suspect]
     Active Substance: HYDROCHLOROTHIAZIDE\OLMESARTAN MEDOXOMIL
     Dosage: 20/12.5 MG, QD
     Route: 048
     Dates: start: 201312, end: 201404
  2. BENICAR HCT [Suspect]
     Active Substance: HYDROCHLOROTHIAZIDE\OLMESARTAN MEDOXOMIL
     Dosage: 40/ 12.5 MG, QD
     Route: 048
  3. NORCO [Concomitant]
     Active Substance: ACETAMINOPHEN\HYDROCODONE BITARTRATE
     Indication: PRODUCT USED FOR UNKNOWN INDICATION
     Dosage: UNK, PRN
     Dates: start: 1999
  4. BENICAR HCT [Suspect]
     Active Substance: HYDROCHLOROTHIAZIDE\OLMESARTAN MEDOXOMIL
     Indication: HYPERTENSION
     Dosage: 20/12.5 MG, QD
     Route: 048
     Dates: start: 2011, end: 20130809
  5. ASPIRINE [Concomitant]
     Active Substance: ASPIRIN
     Indication: PRODUCT USED FOR UNKNOWN INDICATION
     Dosage: 81 MG, QD
     Dates: start: 2001
  6. XANAX [Concomitant]
     Active Substance: ALPRAZOLAM
     Indication: PRODUCT USED FOR UNKNOWN INDICATION
     Dosage: 1 MG, BID
     Route: 048
     Dates: start: 1979

REACTIONS (15)
  - Hypotension [Recovered/Resolved]
  - Malabsorption [Recovering/Resolving]
  - Decreased appetite [Unknown]
  - Hepatic enzyme abnormal [Unknown]
  - Hiatus hernia [Unknown]
  - Irritable bowel syndrome [Unknown]
  - Syncope [Recovered/Resolved]
  - Diverticulum intestinal [Unknown]
  - Large intestine polyp [Unknown]
  - Dizziness [Recovered/Resolved]
  - Emotional distress [Unknown]
  - Anal incontinence [Unknown]
  - Asthenia [Unknown]
  - Haemorrhoids [Unknown]
  - Gastrooesophageal reflux disease [Unknown]

NARRATIVE: CASE EVENT DATE: 2013
